FAERS Safety Report 8906004 (Version 1)
Quarter: 2012Q4

REPORT INFORMATION
  Report Type: 
  Country: CO (occurrence: CO)
  Receive Date: 20121113
  Receipt Date: 20121113
  Transmission Date: 20130627
  Serious: Yes (Other)
  Sender: FDA-Public Use
  Company Number: CO-PFIZER INC-2012283742

PATIENT
  Age: 85 Year
  Sex: Male

DRUGS (3)
  1. CARDURAN NEO [Suspect]
     Indication: PROSTATIC DISORDER
     Dosage: 2 mg, 1x/day
     Route: 048
     Dates: start: 2002
  2. FOLIC ACID [Concomitant]
     Dosage: UNK
     Route: 048
     Dates: start: 2007
  3. OMEPRAZOL [Concomitant]
     Dosage: UNK
     Route: 048
     Dates: start: 2007

REACTIONS (4)
  - Speech disorder [Not Recovered/Not Resolved]
  - Movement disorder [Not Recovered/Not Resolved]
  - Hypertension [Unknown]
  - Tooth extraction [Unknown]
